FAERS Safety Report 15680936 (Version 1)
Quarter: 2018Q4

REPORT INFORMATION
  Report Type: Spontaneous
  Country: US (occurrence: US)
  Receive Date: 20181120
  Receipt Date: 20181120
  Transmission Date: 20190205
  Serious: No
  Sender: FDA-Public Use
  Company Number: None

PATIENT
  Age: 42 Year
  Sex: Male

DRUGS (1)
  1. NOVOLOG [Suspect]
     Active Substance: INSULIN ASPART

REACTIONS (4)
  - Product packaging issue [None]
  - Intercepted product dispensing error [None]
  - Product dispensing error [None]
  - Product label issue [None]

NARRATIVE: CASE EVENT DATE: 201810
